FAERS Safety Report 7787660-2 (Version None)
Quarter: 2011Q3

REPORT INFORMATION
  Report Type: 
  Country: None (occurrence: None)
  Receive Date: 20110929
  Receipt Date: 20110920
  Transmission Date: 20111222
  Serious: Yes (Hospitalization)
  Sender: FDA-Public Use
  Company Number: US-ASTRAZENECA-2011SE38962

PATIENT
  Age: 52 Year
  Sex: Female
  Weight: 102.1 kg

DRUGS (9)
  1. LIPITOR [Concomitant]
  2. MELOXICAM [Concomitant]
     Dosage: DOSE FREQUENCY BID, TOTAL DAILY DOSE-7.5 MG
  3. LORAZEPAM [Concomitant]
     Dosage: PRN
  4. SEROQUEL [Suspect]
     Indication: BIPOLAR I DISORDER
     Dosage: 200 MG AND 50 MG
     Route: 048
     Dates: start: 20070101
  5. LAMICTAL [Concomitant]
  6. SYNTHROID [Concomitant]
  7. METOPROLOL TARTRATE [Concomitant]
     Dosage: DOSE FREQUENCY BID, TOTAL DAILY DOSE-25 MG
  8. TRILIPIX [Concomitant]
  9. CITALOPRAM HYDROBROMIDE [Concomitant]

REACTIONS (7)
  - BACK PAIN [None]
  - BURSITIS [None]
  - LOSS OF CONSCIOUSNESS [None]
  - JOINT CONTRACTURE [None]
  - ILIOTIBIAL BAND SYNDROME [None]
  - CHEST PAIN [None]
  - SYNOVIAL CYST [None]
